FAERS Safety Report 5387024-5 (Version None)
Quarter: 2007Q3

REPORT INFORMATION
  Report Type: 
  Country: None (occurrence: None)
  Receive Date: 20070713
  Receipt Date: 20070703
  Transmission Date: 20080115
  Serious: Yes (Hospitalization)
  Sender: FDA-Public Use
  Company Number: GB-PFIZER INC-2007056323

PATIENT
  Age: 55 Year
  Sex: Female

DRUGS (7)
  1. GABAPENTIN [Suspect]
     Indication: NEURALGIA
     Route: 042
  2. ALFENTANIL [Interacting]
     Indication: GENERAL ANAESTHESIA
  3. FENTANYL TRANSDERMAL SYSTEM [Interacting]
     Indication: GENERAL ANAESTHESIA
     Route: 042
  4. PROPOFOL [Interacting]
     Indication: GENERAL ANAESTHESIA
     Route: 042
  5. CODEINE SUL TAB [Concomitant]
  6. DEXAMETHASONE 0.5MG TAB [Concomitant]
  7. PARACETAMOL [Concomitant]

REACTIONS (2)
  - DRUG INTERACTION [None]
  - MYOTONIA [None]
